FAERS Safety Report 8799692 (Version 2)
Quarter: 2013Q4

REPORT INFORMATION
  Report Type: Spontaneous
  Country: AT (occurrence: AT)
  Receive Date: 20120919
  Receipt Date: 20131031
  Transmission Date: 20140711
  Serious: Yes (Other)
  Sender: FDA-Public Use
  Company Number: AT-009507513-1209AUT006501

PATIENT
  Age: 56 Year
  Sex: Male
  Weight: 89 kg

DRUGS (4)
  1. NASONEX [Suspect]
     Indication: RHINITIS ALLERGIC
     Dosage: UNK
     Dates: start: 20120809, end: 20120809
  2. NASONEX [Suspect]
     Indication: NASAL POLYPECTOMY
  3. SIMVASTATIN [Concomitant]
     Dosage: 20 MG, QD; DOSAGE TEXT:0-0-1
     Dates: start: 20120721, end: 20120816
  4. INHIBACE PLUS [Concomitant]
     Dosage: 0.5 DF, QD
     Dates: start: 20120721, end: 20120816

REACTIONS (1)
  - Hypertensive crisis [Recovered/Resolved]
